FAERS Safety Report 6026793-8 (Version None)
Quarter: 2009Q1

REPORT INFORMATION
  Report Type: 
  Country: None (occurrence: None)
  Receive Date: 20090105
  Receipt Date: 20081224
  Transmission Date: 20090719
  Serious: Yes (Other)
  Sender: FDA-Public Use
  Company Number: US-JNJFOC-20081001928

PATIENT
  Sex: Male
  Weight: 104.33 kg

DRUGS (7)
  1. ULTRAM ER [Suspect]
     Indication: PAIN
     Route: 048
  2. LYRICA [Suspect]
     Indication: SLEEP DISORDER
     Route: 048
  3. LYRICA [Suspect]
     Indication: LUMBAR RADICULOPATHY
     Route: 048
  4. IBUPROFEN [Suspect]
     Indication: HEADACHE
  5. PERCOCETT [Concomitant]
     Indication: PAIN
     Route: 048
  6. LOTRIL [Concomitant]
     Indication: HYPERTENSION
  7. OXYCODONE HYDROCHLORIDE [Concomitant]

REACTIONS (8)
  - ABDOMINAL PAIN [None]
  - DIARRHOEA [None]
  - DISTURBANCE IN ATTENTION [None]
  - HYPERSENSITIVITY [None]
  - RASH [None]
  - SPEECH DISORDER [None]
  - SWOLLEN TONGUE [None]
  - VISION BLURRED [None]
